FAERS Safety Report 22065720 (Version 2)
Quarter: 2023Q1

REPORT INFORMATION
  Report Type: Spontaneous
  Country: US (occurrence: US)
  Receive Date: 20230306
  Receipt Date: 20230307
  Transmission Date: 20230418
  Serious: Yes (Hospitalization)
  Sender: FDA-Public Use
  Company Number: US-JNJFOC-20230300483

PATIENT
  Age: 64 Year
  Sex: Female
  Weight: 93 kg

DRUGS (3)
  1. ACETAMINOPHEN [Suspect]
     Active Substance: ACETAMINOPHEN
     Indication: Product used for unknown indication
     Route: 048
  2. XARELTO [Suspect]
     Active Substance: RIVAROXABAN
     Indication: Product used for unknown indication
     Route: 048
  3. ISOSORBIDE MONONITRATE [Suspect]
     Active Substance: ISOSORBIDE MONONITRATE
     Indication: Product used for unknown indication
     Route: 048

REACTIONS (17)
  - Suicide attempt [Unknown]
  - Suicidal ideation [Unknown]
  - Dizziness [Unknown]
  - Headache [Unknown]
  - Cough [Recovered/Resolved]
  - Haemoptysis [Recovered/Resolved]
  - Epistaxis [Unknown]
  - Non-pitting oedema [Unknown]
  - Haematoma [Unknown]
  - White blood cell count increased [Unknown]
  - Haemoglobin decreased [Unknown]
  - Haematocrit decreased [Unknown]
  - Activated partial thromboplastin time prolonged [Unknown]
  - Intentional overdose [Unknown]
  - Nausea [Unknown]
  - Prothrombin time prolonged [Unknown]
  - International normalised ratio increased [Unknown]
